FAERS Safety Report 5467781-X (Version None)
Quarter: 2007Q3

REPORT INFORMATION
  Report Type: 
  Country: None (occurrence: None)
  Receive Date: 20070926
  Receipt Date: 20070920
  Transmission Date: 20080115
  Serious: Yes (Death, Hospitalization, Other)
  Sender: FDA-Public Use
  Company Number: PHBS2007BE15615

PATIENT
  Age: 52 Year
  Sex: Male

DRUGS (7)
  1. BASILIXIMAB [Suspect]
     Indication: RENAL AND PANCREAS TRANSPLANT
     Dosage: 30 MG, ONCE/SINGLE
     Route: 042
  2. BASILIXIMAB [Suspect]
     Dosage: 30 MG, ONCE/SINGLE
     Route: 042
  3. METHYLPREDNISOLONE [Suspect]
     Indication: RENAL AND PANCREAS TRANSPLANT
     Dosage: 6 MG/D
  4. METHYLPREDNISOLONE [Suspect]
     Dosage: 500 MG/D
     Route: 042
  5. METHYLPREDNISOLONE [Suspect]
     Dosage: 40 MG/D
     Route: 065
  6. TACROLIMUS [Suspect]
     Indication: RENAL AND PANCREAS TRANSPLANT
     Route: 048
  7. MYCOPHENOLATE MOFETIL [Suspect]
     Indication: RENAL AND PANCREAS TRANSPLANT
     Dosage: 1 G, BID
     Route: 048

REACTIONS (38)
  - ABDOMINAL INFECTION [None]
  - ASPERGILLOSIS [None]
  - ATELECTASIS [None]
  - BLOOD BICARBONATE DECREASED [None]
  - BLOOD CREATININE INCREASED [None]
  - BRONCHIAL DISORDER [None]
  - BRONCHOPULMONARY ASPERGILLOSIS [None]
  - C-REACTIVE PROTEIN INCREASED [None]
  - CARDIAC FAILURE [None]
  - CARDIAC MURMUR [None]
  - ENDOCARDITIS [None]
  - ENTEROBACTER INFECTION [None]
  - ENTEROCOCCAL INFECTION [None]
  - HAEMOPTYSIS [None]
  - HEPATIC FUNCTION ABNORMAL [None]
  - HYPOTENSION [None]
  - HYPOXIA [None]
  - LUNG INFILTRATION [None]
  - MECHANICAL VENTILATION [None]
  - METABOLIC ACIDOSIS [None]
  - NEUROPATHY [None]
  - PERITONITIS [None]
  - PLEURAL DISORDER [None]
  - PNEUMONIA [None]
  - PSEUDOMONAS INFECTION [None]
  - PULMONARY EMBOLISM [None]
  - PULMONARY HAEMORRHAGE [None]
  - PYREXIA [None]
  - RENAL FAILURE [None]
  - RESPIRATORY FAILURE [None]
  - SEPTIC SHOCK [None]
  - TACHYPNOEA [None]
  - TRANSPLANT REJECTION [None]
  - TRICUSPID VALVE DISEASE [None]
  - TRICUSPID VALVE REPLACEMENT [None]
  - WHEEZING [None]
  - WHITE BLOOD CELL COUNT DECREASED [None]
  - WOUND DEHISCENCE [None]
